FAERS Safety Report 19309408 (Version 1)
Quarter: 2021Q2

REPORT INFORMATION
  Report Type: Spontaneous
  Country: FR (occurrence: FR)
  Receive Date: 20210526
  Receipt Date: 20210526
  Transmission Date: 20210717
  Serious: Yes (Hospitalization)
  Sender: FDA-Public Use
  Company Number: FR-TEVA-2021-FR-1914468

PATIENT
  Age: 72 Year
  Sex: Female

DRUGS (9)
  1. MIRTAZAPINE. [Suspect]
     Active Substance: MIRTAZAPINE
     Indication: DEPRESSION
     Dosage: 30 MG
     Route: 048
     Dates: start: 20201005
  2. ZYMAD [Suspect]
     Active Substance: CHOLECALCIFEROL
     Indication: VITAMIN D DEFICIENCY
     Dosage: 1 DF
     Route: 048
     Dates: start: 20200912
  3. OXYCODONE [Suspect]
     Active Substance: OXYCODONE
     Indication: PAIN
     Dosage: 5 MG
     Route: 048
     Dates: start: 202008
  4. DIFFU [POTASSIUM CHLORIDE] [Suspect]
     Active Substance: POTASSIUM CHLORIDE
     Indication: HYPOKALAEMIA
     Dosage: 1200 MG
     Route: 048
     Dates: start: 20201003
  5. ZOPICLONE [Concomitant]
     Active Substance: ZOPICLONE
     Dosage: 7.5 MG
     Route: 048
     Dates: start: 20210121, end: 20210311
  6. NICORETTE [Suspect]
     Active Substance: NICOTINE
     Indication: EX-TOBACCO USER
     Dosage: 1 DF
     Route: 048
     Dates: start: 202009
  7. CARTEOL [Concomitant]
     Dosage: 1 DF
     Dates: start: 201909
  8. TERIPARATIDE [Suspect]
     Active Substance: TERIPARATIDE
     Indication: OSTEOPOROSIS
     Dosage: 20 MG
     Route: 058
     Dates: start: 202009
  9. OXAZEPAM. [Suspect]
     Active Substance: OXAZEPAM
     Indication: ANXIETY
     Dosage: 90 MG
     Route: 048
     Dates: start: 20201005

REACTIONS (2)
  - Paraesthesia oral [Not Recovered/Not Resolved]
  - Hallucination, synaesthetic [Not Recovered/Not Resolved]

NARRATIVE: CASE EVENT DATE: 202102
